FAERS Safety Report 17857999 (Version 1)
Quarter: 2020Q2

REPORT INFORMATION
  Report Type: Spontaneous
  Country: SA (occurrence: SA)
  Receive Date: 20200604
  Receipt Date: 20200604
  Transmission Date: 20200714
  Serious: Yes (Other)
  Sender: FDA-Public Use
  Company Number: SA-SGP-000002

PATIENT
  Age: 53 Year

DRUGS (1)
  1. METHYLPREDNISOLONE. [Suspect]
     Active Substance: METHYLPREDNISOLONE
     Indication: IMMUNE THROMBOCYTOPENIA
     Route: 065

REACTIONS (3)
  - Hyperglycaemia [Unknown]
  - Insulin resistance [Unknown]
  - Diabetic ketoacidosis [Unknown]
